FAERS Safety Report 8781618 (Version 1)
Quarter: 2012Q4

REPORT INFORMATION
  Report Type: 
  Country: US (occurrence: US)
  Receive Date: 20120913
  Receipt Date: 20120913
  Transmission Date: 20130627
  Serious: No
  Sender: FDA-Public Use
  Company Number: US-JNJFOC-20120900087

PATIENT
  Age: 74 Year
  Sex: Male
  Weight: 77.11 kg

DRUGS (2)
  1. FENTANYL [Suspect]
     Indication: PAIN
     Dosage: (12.5 25) ug/hr

NDC number 0781-7240-05
     Route: 062
  2. OXYCODONE [Concomitant]
     Indication: BREAKTHROUGH PAIN
     Dosage: 5/325 tablet as needed.

NDC number 0781-7240-03
     Route: 048

REACTIONS (2)
  - Poor quality drug administered [Not Recovered/Not Resolved]
  - Product quality issue [Unknown]
